FAERS Safety Report 5974943-1 (Version None)
Quarter: 2008Q4

REPORT INFORMATION
  Report Type: 
  Country: None (occurrence: None)
  Receive Date: 20081202
  Receipt Date: 20081121
  Transmission Date: 20090506
  Serious: Yes (Other)
  Sender: FDA-Public Use
  Company Number: GB-RANBAXY-2008RR-19558

PATIENT

DRUGS (1)
  1. RANITIDINE [Suspect]
     Dosage: 225 MG, UNK

REACTIONS (3)
  - FORMICATION [None]
  - HALLUCINATION [None]
  - MALAISE [None]
